FAERS Safety Report 10691425 (Version 2)
Quarter: 2015Q1

REPORT INFORMATION
  Report Type: Report from Study
  Country: CO (occurrence: CO)
  Receive Date: 20150105
  Receipt Date: 20150129
  Transmission Date: 20150720
  Serious: Yes (Hospitalization)
  Sender: FDA-Public Use
  Company Number: CO-SA-2014SA179832

PATIENT
  Age: 96 Year
  Sex: Female

DRUGS (8)
  1. LEVOTHYROXINE [Concomitant]
     Active Substance: LEVOTHYROXINE
     Indication: HYPOTHYROIDISM
     Route: 048
  2. SALBUTAMOL [Concomitant]
     Active Substance: ALBUTEROL
     Indication: CHRONIC OBSTRUCTIVE PULMONARY DISEASE
     Dosage: DOSE:2 PUFF(S)
     Route: 055
  3. BECLOMETASONE [Concomitant]
     Active Substance: BECLOMETHASONE DIPROPIONATE
     Indication: CHRONIC OBSTRUCTIVE PULMONARY DISEASE
     Dosage: DOSE:2 PUFF(S)
     Route: 055
  4. FUROSEMIDE. [Concomitant]
     Active Substance: FUROSEMIDE
     Indication: HYPERTENSION
     Route: 048
  5. APROVASC [Suspect]
     Active Substance: AMLODIPINE BESYLATE\IRBESARTAN
     Indication: HYPERTENSION
     Dosage: DOSE : 300/5 MG
     Route: 048
     Dates: start: 201410
  6. NEBILET [Concomitant]
     Active Substance: NEBIVOLOL
     Indication: HYPERTENSION
     Route: 048
     Dates: start: 2013
  7. COAPROVEL [Suspect]
     Active Substance: HYDROCHLOROTHIAZIDE\IRBESARTAN
     Indication: HYPERTENSION
     Dosage: DOSE  :300/12.5 MG
     Route: 048
     Dates: start: 2007, end: 201410
  8. IPRATROPIUM BROMIDE. [Concomitant]
     Active Substance: IPRATROPIUM BROMIDE
     Indication: CHRONIC OBSTRUCTIVE PULMONARY DISEASE
     Dosage: DOSE:2 PUFF(S)
     Route: 055

REACTIONS (7)
  - Respiratory distress [Recovered/Resolved]
  - Urinary tract infection [Recovered/Resolved]
  - Cardiac failure [Recovered/Resolved]
  - Papule [Recovering/Resolving]
  - Hypokalaemia [Recovered/Resolved]
  - Chronic obstructive pulmonary disease [Recovered/Resolved]
  - Blood pressure systolic decreased [Recovered/Resolved]

NARRATIVE: CASE EVENT DATE: 2014
